FAERS Safety Report 18776902 (Version 1)
Quarter: 2021Q1

REPORT INFORMATION
  Report Type: Report from Study
  Country: US (occurrence: US)
  Receive Date: 20210122
  Receipt Date: 20210122
  Transmission Date: 20210419
  Serious: Yes (Hospitalization)
  Sender: FDA-Public Use
  Company Number: US-TAKEDA-US201933073

PATIENT
  Age: 60 Year
  Sex: Female

DRUGS (1)
  1. HUMAN NORMAL IMMUNOGLOBULIN; LIQUID [Suspect]
     Active Substance: HUMAN IMMUNOGLOBULIN G
     Indication: HYPOGAMMAGLOBULINAEMIA
     Route: 042

REACTIONS (10)
  - Drug ineffective [Unknown]
  - COVID-19 [Unknown]
  - Malaise [Not Recovered/Not Resolved]
  - Incorrect drug administration rate [Unknown]
  - Weight increased [Unknown]
  - Herpes zoster [Unknown]
  - Depressed mood [Unknown]
  - Headache [Unknown]
  - Fatigue [Unknown]
  - Allergy to immunoglobulin therapy [Unknown]

NARRATIVE: CASE EVENT DATE: 202008
